FAERS Safety Report 23585988 (Version 1)
Quarter: 2024Q1

REPORT INFORMATION
  Report Type: Spontaneous
  Country: DE (occurrence: DE)
  Receive Date: 20240301
  Receipt Date: 20240301
  Transmission Date: 20240410
  Serious: Yes (Hospitalization, Other)
  Sender: FDA-Public Use
  Company Number: DE-BRISTOL-MYERS SQUIBB COMPANY-BMS-2021-082818

PATIENT
  Age: 52 Year
  Sex: Male
  Weight: 148 kg

DRUGS (40)
  1. ABRAXANE [Suspect]
     Active Substance: PACLITAXEL
     Indication: Product used for unknown indication
     Route: 065
  2. CARBOPLATIN [Suspect]
     Active Substance: CARBOPLATIN
     Dosage: 700 MG, QD (700 MILLIGRAM FREQUENCY 1)
     Route: 042
     Dates: start: 20210726, end: 20210817
  3. CARBOPLATIN [Suspect]
     Active Substance: CARBOPLATIN
     Dosage: 700 MG, QD (700 MILLIGRAM, FREQUENCY 1)
     Route: 042
     Dates: start: 20210906
  4. CARBOPLATIN [Suspect]
     Active Substance: CARBOPLATIN
     Dosage: 700 MG, QD (700 MILLIGRAM, FREQUENCY 1)
     Route: 042
     Dates: end: 20211110
  5. CARBOPLATIN [Suspect]
     Active Substance: CARBOPLATIN
     Indication: Non-small cell lung cancer
     Dosage: UNK
     Route: 065
     Dates: start: 20210715, end: 20210716
  6. CARBOPLATIN [Suspect]
     Active Substance: CARBOPLATIN
     Dosage: UNK
     Route: 065
  7. DENOSUMAB [Suspect]
     Active Substance: DENOSUMAB
     Indication: Non-small cell lung cancer
     Dosage: .023 ABSENT 1 ABSENT 1 ABSENT, Q6WK
     Route: 058
     Dates: start: 20210706
  8. PACLITAXEL [Suspect]
     Active Substance: PACLITAXEL
     Dosage: 400 MG, CYCLIC (2 CYCLES)
     Route: 065
     Dates: start: 20210906
  9. PACLITAXEL [Suspect]
     Active Substance: PACLITAXEL
     Dosage: 400 MG, CYCLIC (2 CYCLES) (LAST DOSE RECEIVED ON 10 NOV 2021)
     Route: 065
  10. PACLITAXEL [Suspect]
     Active Substance: PACLITAXEL
     Dosage: 400 MILLIGRAM
     Route: 065
     Dates: start: 20210726, end: 20210817
  11. PACLITAXEL [Suspect]
     Active Substance: PACLITAXEL
     Indication: Non-small cell lung cancer
     Dosage: UNK
     Route: 065
     Dates: start: 20210715, end: 20210716
  12. OPDIVO [Suspect]
     Active Substance: NIVOLUMAB
     Dosage: 300 MG, QD
     Route: 042
     Dates: start: 20210726
  13. OPDIVO [Suspect]
     Active Substance: NIVOLUMAB
     Indication: Non-small cell lung cancer
     Dosage: 360 MILLIGRAM, Q3WK
     Route: 065
     Dates: start: 20210715
  14. OPDIVO [Suspect]
     Active Substance: NIVOLUMAB
     Dosage: 360 MILLIGRAM
     Route: 042
     Dates: start: 20210726
  15. OPDIVO [Suspect]
     Active Substance: NIVOLUMAB
     Dosage: UNK
     Route: 042
     Dates: start: 20210816
  16. OPDIVO [Suspect]
     Active Substance: NIVOLUMAB
     Dosage: UNK
     Route: 042
     Dates: start: 20210906
  17. OPDIVO [Suspect]
     Active Substance: NIVOLUMAB
     Dosage: UNK
     Route: 042
     Dates: start: 20211019
  18. YERVOY [Suspect]
     Active Substance: IPILIMUMAB
     Indication: Non-small cell lung cancer
     Dosage: 1 MILLIGRAM/KILOGRAM, Q6WK
     Route: 042
     Dates: start: 20210715
  19. YERVOY [Suspect]
     Active Substance: IPILIMUMAB
     Dosage: 140 MILLIGRAM FREQUENCY 1
     Route: 042
     Dates: start: 20210726
  20. YERVOY [Suspect]
     Active Substance: IPILIMUMAB
     Dosage: UNK
     Route: 042
     Dates: start: 20210816
  21. YERVOY [Suspect]
     Active Substance: IPILIMUMAB
     Dosage: UNK
     Route: 042
     Dates: start: 20210906
  22. YERVOY [Suspect]
     Active Substance: IPILIMUMAB
     Dosage: UNK
     Route: 042
     Dates: start: 20211110
  23. ASPIRIN [Concomitant]
     Active Substance: ASPIRIN
     Indication: Product used for unknown indication
     Dosage: UNK
     Route: 065
  24. METHYLPREDNISOLONE ACEPONATE [Concomitant]
     Active Substance: METHYLPREDNISOLONE ACEPONATE
     Indication: Product used for unknown indication
     Dosage: 0.1 %
     Route: 065
     Dates: start: 20210817, end: 20210916
  25. METHYLPREDNISOLONE ACEPONATE [Concomitant]
     Active Substance: METHYLPREDNISOLONE ACEPONATE
     Dosage: 0,1 % CREAM
     Route: 065
     Dates: start: 20210817, end: 20210916
  26. ATORVASTATIN [Concomitant]
     Active Substance: ATORVASTATIN
     Indication: Product used for unknown indication
     Dosage: UNK
     Route: 065
  27. METOPROLOL SUCCINATE [Concomitant]
     Active Substance: METOPROLOL SUCCINATE
     Indication: Product used for unknown indication
     Dosage: UNK
     Route: 065
  28. LEVOTHYROXINE SODIUM [Concomitant]
     Active Substance: LEVOTHYROXINE SODIUM
     Indication: Product used for unknown indication
     Dosage: UNK
     Route: 065
     Dates: start: 20210622, end: 20210917
  29. LERCANIDIPINE [Concomitant]
     Active Substance: LERCANIDIPINE
     Indication: Product used for unknown indication
     Dosage: UNK
     Route: 065
     Dates: start: 20210622, end: 20220407
  30. METAMIZOL [Concomitant]
     Active Substance: METAMIZOLE SODIUM
     Indication: Product used for unknown indication
     Dosage: UNK (UPTO MAXIMAL 4X2 TABLETS)
     Route: 065
     Dates: start: 20210817
  31. OLMESAR [Concomitant]
     Indication: Product used for unknown indication
     Dosage: UNK
     Route: 065
     Dates: end: 20220407
  32. PACLITAXEL [Concomitant]
     Active Substance: PACLITAXEL
     Dosage: 400 MG
     Route: 065
     Dates: start: 20210726, end: 20210817
  33. PACLITAXEL [Concomitant]
     Active Substance: PACLITAXEL
     Dosage: 400 MG, CYCLIC (2 CYCLES)
     Route: 065
     Dates: start: 20210906
  34. PACLITAXEL [Concomitant]
     Active Substance: PACLITAXEL
     Dosage: 400 MG, CYCLIC (2 CYCLES)
     Route: 065
     Dates: start: 20211110
  35. PACLITAXEL [Concomitant]
     Active Substance: PACLITAXEL
     Dosage: 700 MG, QD
     Route: 042
     Dates: start: 20210726
  36. PACLITAXEL [Concomitant]
     Active Substance: PACLITAXEL
     Indication: Non-small cell lung cancer
     Dosage: UNK
     Route: 065
     Dates: start: 20210715, end: 20210716
  37. PANTOZOL [Concomitant]
     Active Substance: PANTOPRAZOLE SODIUM
     Indication: Prophylaxis
     Dosage: UNK
     Route: 065
     Dates: start: 20210621
  38. PREDNISOLONE ACETATE [Concomitant]
     Active Substance: PREDNISOLONE ACETATE
     Indication: Product used for unknown indication
     Dosage: UNK
     Route: 065
     Dates: start: 20210623
  39. PREDNISOLONE [Concomitant]
     Active Substance: PREDNISOLONE
     Indication: Product used for unknown indication
     Dosage: UNK
     Route: 065
  40. PREDNISOLONE [Concomitant]
     Active Substance: PREDNISOLONE
     Indication: Product used for unknown indication
     Dosage: UNK
     Route: 065
     Dates: start: 20211020, end: 20211103

REACTIONS (15)
  - Radiation pneumonitis [Recovered/Resolved]
  - Oedema peripheral [Recovered/Resolved]
  - Chronic obstructive pulmonary disease [Unknown]
  - Leukopenia [Recovered/Resolved]
  - Pain in extremity [Unknown]
  - Myalgia [Unknown]
  - Arthralgia [Unknown]
  - Arthralgia [Recovered/Resolved]
  - Myalgia [Recovered/Resolved]
  - Pruritus [Recovered/Resolved]
  - Rash [Recovered/Resolved]
  - Paraesthesia [Unknown]
  - Rash [Recovered/Resolved]
  - Pruritus [Recovered/Resolved]
  - Prescribed underdose [Unknown]

NARRATIVE: CASE EVENT DATE: 20210726
